FAERS Safety Report 7355702-4 (Version None)
Quarter: 2011Q1

REPORT INFORMATION
  Report Type: 
  Country: None (occurrence: None)
  Receive Date: 20110316
  Receipt Date: 20110311
  Transmission Date: 20110831
  Serious: Yes (Death)
  Sender: FDA-Public Use
  Company Number: DE-PFIZER INC-2009196429

PATIENT
  Age: 53 Year
  Sex: Female

DRUGS (6)
  1. ARGATRA [Suspect]
     Indication: HEPARIN-INDUCED THROMBOCYTOPENIA
     Dosage: 0.35 MCG/KG/MIN - 0.09 MCG/KG/MIN
     Route: 042
     Dates: start: 20090127, end: 20090207
  2. CUBICIN [Concomitant]
     Dosage: 500 MG, 1X/DAY
     Dates: start: 20090130
  3. ZIENAM [Concomitant]
     Dosage: 1 G, 2X/DAY
     Dates: start: 20090205
  4. ATENOLOL [Concomitant]
  5. DOBUTREX [Concomitant]
  6. COROTROP [Concomitant]

REACTIONS (2)
  - INTESTINAL ISCHAEMIA [None]
  - CARDIOPULMONARY FAILURE [None]
